FAERS Safety Report 4882295-3 (Version None)
Quarter: 2006Q1

REPORT INFORMATION
  Report Type: 
  Country: None (occurrence: None)
  Receive Date: 20060112
  Receipt Date: 20060103
  Transmission Date: 20060701
  Serious: Yes (Hospitalization, Other)
  Sender: FDA-Public Use
  Company Number: 2006RR-01434

PATIENT
  Age: 36 Year
  Sex: Female

DRUGS (2)
  1. IBUPROFEN [Suspect]
     Indication: ARTHRALGIA
     Dosage: 200 MG, ORAL
     Route: 048
     Dates: start: 20051001, end: 20051120
  2. CALCICHEW [Concomitant]

REACTIONS (2)
  - ABDOMINAL PAIN UPPER [None]
  - HAEMATEMESIS [None]
